FAERS Safety Report 9219841 (Version 1)
Quarter: 2013Q1

REPORT INFORMATION
  Report Type: Spontaneous
  Country: US (occurrence: None)
  Receive Date: 20120828
  Receipt Date: 20120828
  Transmission Date: 20140127
  Serious: Yes (Other)
  Sender: FDA-Public Use
  Company Number: 2011BH040230

PATIENT
  Age: 3 Year
  Sex: Female

DRUGS (3)
  1. KIOVIG LIQUID_10_SOLUTION FOR INFUSION_VIAL GLASS (IMMNOGLOBULIN, NORMAL HUMAN) (SOLUTION FO INFUSION) [Suspect]
     Indication: IDIOPATHIC THROMBOCYTOPENIC PURPURA
     Route: 042
  2. TYLENOL [Concomitant]
  3. BENADRYL [Concomitant]

REACTIONS (1)
  - Chills [None]
